FAERS Safety Report 24405115 (Version 1)
Quarter: 2024Q4

REPORT INFORMATION
  Report Type: Spontaneous
  Country: US (occurrence: None)
  Receive Date: 20241004
  Receipt Date: 20241004
  Transmission Date: 20250114
  Serious: Yes (Disabling)
  Sender: Public
  Company Number: None

PATIENT
  Age: 90 Year
  Sex: Female
  Weight: 57.15 kg

DRUGS (2)
  1. LIBTAYO [Suspect]
     Active Substance: CEMIPLIMAB-RWLC
     Indication: Squamous cell carcinoma of skin
     Dates: start: 20231102, end: 20231102
  2. LIBTAYO [Concomitant]
     Active Substance: CEMIPLIMAB-RWLC
     Dates: start: 20231102, end: 20231102

REACTIONS (4)
  - Hypercalcaemia [None]
  - Acute kidney injury [None]
  - Hypophagia [None]
  - Paraneoplastic syndrome [None]

NARRATIVE: CASE EVENT DATE: 20231114
